FAERS Safety Report 4387986-9 (Version None)
Quarter: 2004Q2

REPORT INFORMATION
  Report Type: 
  Country: None (occurrence: None)
  Receive Date: 20040607
  Receipt Date: 20030421
  Transmission Date: 20050107
  Serious: Yes (Other)
  Sender: FDA-Public Use
  Company Number: 319814

PATIENT
  Sex: Male
  Weight: 3.5 kg

DRUGS (2)
  1. ACCUTANE [Suspect]
     Indication: ACNE
     Dosage: ORAL
     Route: 048
     Dates: start: 19980615, end: 20020724
  2. FAMVIR [Concomitant]

REACTIONS (3)
  - NO ADVERSE DRUG EFFECT [None]
  - NO ADVERSE EFFECT [None]
  - NORMAL NEWBORN [None]
